FAERS Safety Report 6166795-4 (Version None)
Quarter: 2009Q2

REPORT INFORMATION
  Report Type: 
  Country: None (occurrence: None)
  Receive Date: 20090424
  Receipt Date: 20090414
  Transmission Date: 20091009
  Serious: Yes (Other)
  Sender: FDA-Public Use
  Company Number: US-ROCHE-616133

PATIENT
  Age: 70 Year
  Sex: Female
  Weight: 71.2 kg

DRUGS (12)
  1. BONIVA [Suspect]
     Indication: DRUG USE FOR UNKNOWN INDICATION
     Route: 048
     Dates: start: 20090116, end: 20090216
  2. TOPROL-XL [Concomitant]
     Indication: HYPERTENSION
     Route: 048
  3. ENALAPRIL [Concomitant]
     Indication: HYPERTENSION
     Route: 048
  4. LEVOTHYROXINE [Concomitant]
     Indication: HYPOTHYROIDISM
     Route: 048
  5. CRESTOR [Concomitant]
  6. NEXIUM [Concomitant]
     Indication: RECTAL PROLAPSE
     Route: 048
  7. PLAVIX [Concomitant]
  8. LORATADINE [Concomitant]
  9. MULTI-VITAMIN [Concomitant]
     Dosage: DRUG REPORTED: MULTIVITAMINE
  10. FLUTICASONE [Concomitant]
  11. CALCIUM NOS [Concomitant]
     Dosage: DRUG REPORTED: CALCIUM OSTEOBIOFLUX
  12. ASPIRIN [Concomitant]

REACTIONS (4)
  - ANXIETY [None]
  - HAND DEFORMITY [None]
  - JOINT CONTRACTURE [None]
  - MUSCULOSKELETAL PAIN [None]
